FAERS Safety Report 12820933 (Version 2)
Quarter: 2017Q1

REPORT INFORMATION
  Report Type: Report from Study
  Country: CO (occurrence: CO)
  Receive Date: 20161006
  Receipt Date: 20170201
  Transmission Date: 20170428
  Serious: Yes (Other)
  Sender: FDA-Public Use
  Company Number: PHHY2015CO111291

PATIENT
  Age: 24 Year
  Sex: Male
  Weight: 64 kg

DRUGS (1)
  1. TASIGNA [Suspect]
     Active Substance: NILOTINIB
     Indication: CHRONIC MYELOID LEUKAEMIA
     Dosage: 200 MG, BID
     Route: 048
     Dates: start: 20150406

REACTIONS (17)
  - Fatigue [Unknown]
  - Bone pain [Unknown]
  - Pyrexia [Unknown]
  - Nausea [Unknown]
  - Blood pressure decreased [Unknown]
  - Weight decreased [Unknown]
  - Contusion [Unknown]
  - Alopecia [Unknown]
  - Decreased appetite [Unknown]
  - Dizziness [Unknown]
  - Hepatitis [Unknown]
  - Malignant neoplasm progression [Unknown]
  - Asthenia [Unknown]
  - Gingival bleeding [Unknown]
  - Malaise [Unknown]
  - Feeling cold [Unknown]
  - Chronic myeloid leukaemia [Unknown]

NARRATIVE: CASE EVENT DATE: 20151005
